FAERS Safety Report 14415357 (Version 1)
Quarter: 2018Q1

REPORT INFORMATION
  Report Type: Report from Study
  Country: DE (occurrence: DE)
  Receive Date: 20180121
  Receipt Date: 20180121
  Transmission Date: 20180509
  Serious: Yes (Other)
  Sender: FDA-Public Use
  Company Number: PHHY2017DE176795

PATIENT
  Sex: Female
  Weight: 64 kg

DRUGS (24)
  1. COSENTYX [Suspect]
     Active Substance: SECUKINUMAB
     Dosage: 300 MG, (PER APPLICATION, PRE-FILLED PEN)
     Route: 065
     Dates: start: 20160720
  2. COSENTYX [Suspect]
     Active Substance: SECUKINUMAB
     Dosage: 300 MG,(PER APPLICATION, PRE-FILLED PEN)
     Route: 065
     Dates: start: 20160920
  3. COSENTYX [Suspect]
     Active Substance: SECUKINUMAB
     Dosage: 150 MG, (PER APPLICATION, PRE-FILLED PEN)
     Route: 065
     Dates: start: 20170321
  4. COSENTYX [Suspect]
     Active Substance: SECUKINUMAB
     Dosage: 150 MG, (PER APPLICATION, PRE-FILLED PEN)
     Route: 065
     Dates: start: 20170121
  5. METHOTREXATE. [Concomitant]
     Active Substance: METHOTREXATE
     Dosage: 15 MG, QW
     Route: 048
  6. IBUPROFEN. [Concomitant]
     Active Substance: IBUPROFEN
     Indication: PSORIATIC ARTHROPATHY
     Dosage: 400-600 MG, PRN (AS NEEDED)
     Route: 048
     Dates: start: 200901
  7. COSENTYX [Suspect]
     Active Substance: SECUKINUMAB
     Dosage: 300 MG (PER APPLICATION, PRE-FILLED PEN)
     Route: 065
     Dates: start: 20160629
  8. COSENTYX [Suspect]
     Active Substance: SECUKINUMAB
     Dosage: 300 MG (PER APPLICATION, PRE-FILLED PEN)
     Route: 065
     Dates: start: 20160713
  9. COSENTYX [Suspect]
     Active Substance: SECUKINUMAB
     Dosage: 300 MG, (PER APPLICATION, PRE-FILLED PEN)
     Route: 065
     Dates: start: 20161020
  10. COSENTYX [Suspect]
     Active Substance: SECUKINUMAB
     Dosage: 150 MG, (PER APPLICATION, PRE-FILLED PEN)
     Route: 065
     Dates: start: 20170221
  11. COSENTYX [Suspect]
     Active Substance: SECUKINUMAB
     Dosage: 150 MG, (PER APPLICATION, PRE-FILLED PEN)
     Route: 065
     Dates: start: 20170421
  12. COSENTYX [Suspect]
     Active Substance: SECUKINUMAB
     Dosage: 150 MG, (PER APPLICATION, PRE-FILLED PEN)
     Route: 065
     Dates: start: 20170621
  13. METHOTREXATE. [Concomitant]
     Active Substance: METHOTREXATE
     Indication: PSORIATIC ARTHROPATHY
     Dosage: 10 MG, QW (PER WEEK)
     Route: 048
     Dates: start: 200901, end: 201612
  14. FOLIC ACID. [Concomitant]
     Active Substance: FOLIC ACID
     Indication: PROPHYLAXIS
     Dosage: 15 MG, UNK
     Route: 048
     Dates: start: 201612
  15. COSENTYX [Suspect]
     Active Substance: SECUKINUMAB
     Dosage: 150 MG, (PER APPLICATION, PRE-FILLED PEN)
     Route: 065
     Dates: start: 20161222
  16. COSENTYX [Suspect]
     Active Substance: SECUKINUMAB
     Dosage: 150 MG, (PER APPLICATION, PRE-FILLED PEN)
     Route: 065
     Dates: start: 20170521
  17. COSENTYX [Suspect]
     Active Substance: SECUKINUMAB
     Dosage: 150 MG, (PER APPLICATION, PRE-FILLED PEN)
     Route: 065
     Dates: start: 20170921
  18. COSENTYX [Suspect]
     Active Substance: SECUKINUMAB
     Indication: PSORIATIC ARTHROPATHY
     Dosage: 300 MG, UNK (PER APPLICATION, PRE-FILLED PEN)
     Route: 065
     Dates: start: 20160622
  19. COSENTYX [Suspect]
     Active Substance: SECUKINUMAB
     Dosage: 150 MG, (PER APPLICATION, PRE-FILLED PEN)
     Route: 065
     Dates: start: 20170821
  20. COSENTYX [Suspect]
     Active Substance: SECUKINUMAB
     Dosage: 300 MG, (PER APPLICATION, PRE-FILLED PEN)
     Route: 065
     Dates: start: 20161120
  21. COSENTYX [Suspect]
     Active Substance: SECUKINUMAB
     Dosage: 300 MG, (PER APPLICATION, PRE-FILLED PEN)
     Route: 065
     Dates: start: 20160706
  22. COSENTYX [Suspect]
     Active Substance: SECUKINUMAB
     Dosage: 300 MG, (PER APPLICATION, PRE-FILLED PEN)
     Route: 065
     Dates: start: 20160820
  23. COSENTYX [Suspect]
     Active Substance: SECUKINUMAB
     Dosage: 150 MG, (PER APPLICATION, PRE-FILLED PEN)
     Route: 065
     Dates: start: 20170721
  24. COSENTYX [Suspect]
     Active Substance: SECUKINUMAB
     Dosage: 150 MG, (PER APPLICATION, PRE-FILLED PEN)
     Route: 065
     Dates: start: 20171021

REACTIONS (2)
  - Cystitis [Recovered/Resolved]
  - Urinary bladder haemorrhage [Recovered/Resolved]

NARRATIVE: CASE EVENT DATE: 20171106
